FAERS Safety Report 21377373 (Version 4)
Quarter: 2022Q4

REPORT INFORMATION
  Report Type: Report from Study
  Country: US (occurrence: US)
  Receive Date: 20220926
  Receipt Date: 20221031
  Transmission Date: 20230112
  Serious: Yes (Hospitalization)
  Sender: FDA-Public Use
  Company Number: US-BRISTOL-MYERS SQUIBB COMPANY-2022-111376

PATIENT
  Age: 69 Year
  Sex: Male
  Weight: 68.0 kg

DRUGS (3)
  1. NIVOLUMAB [Suspect]
     Active Substance: NIVOLUMAB
     Indication: Transitional cell carcinoma
     Route: 042
     Dates: start: 20220725, end: 20220824
  2. KYN-175 [Suspect]
     Active Substance: KYN-175
     Indication: Transitional cell carcinoma
     Dosage: QD
     Route: 048
     Dates: start: 20220725, end: 20220824
  3. KYN-175 [Suspect]
     Active Substance: KYN-175

REACTIONS (2)
  - Bone pain [Not Recovered/Not Resolved]
  - Atrial flutter [Recovered/Resolved]

NARRATIVE: CASE EVENT DATE: 20220903
